FAERS Safety Report 7645256-7 (Version None)
Quarter: 2011Q3

REPORT INFORMATION
  Report Type: 
  Country: None (occurrence: None)
  Receive Date: 20110729
  Receipt Date: 20110719
  Transmission Date: 20111222
  Serious: Yes (Other)
  Sender: FDA-Public Use
  Company Number: US-AMGEN-USASP2011036812

PATIENT
  Age: 56 Year
  Sex: Female

DRUGS (1)
  1. PROLIA [Suspect]
     Indication: OSTEOPOROSIS
     Dosage: 60 MG, UNK
     Dates: start: 20100915

REACTIONS (15)
  - PAIN [None]
  - HEART RATE INCREASED [None]
  - ARTHRALGIA [None]
  - PANCREATITIS CHRONIC [None]
  - GROIN PAIN [None]
  - FEELING ABNORMAL [None]
  - MUSCULOSKELETAL CHEST PAIN [None]
  - PAIN IN EXTREMITY [None]
  - PANCREATITIS [None]
  - MYALGIA [None]
  - ATRIAL FIBRILLATION [None]
  - BLOOD CHOLESTEROL INCREASED [None]
  - LIVER DISORDER [None]
  - PALPITATIONS [None]
  - FLATULENCE [None]
